FAERS Safety Report 4426699-1 (Version None)
Quarter: 2004Q3

REPORT INFORMATION
  Report Type: 
  Country: None (occurrence: None)
  Receive Date: 20040812
  Receipt Date: 20040812
  Transmission Date: 20050211
  Serious: Yes (Hospitalization)
  Sender: FDA-Public Use
  Company Number: None

PATIENT
  Sex: Male

DRUGS (14)
  1. ALENDRONATE SODIUM [Suspect]
     Indication: OSTEOPOROSIS
     Dosage: 70 MG WEEKLY ORAL
     Route: 048
     Dates: start: 20040802, end: 20040802
  2. ZETIA [Concomitant]
  3. PREDNISONE [Concomitant]
  4. BACTRIM [Concomitant]
  5. VERAPAMIL [Concomitant]
  6. PRAVACHOL [Concomitant]
  7. MULTI-VITAMIN [Concomitant]
  8. FLOVENT [Concomitant]
  9. SEREVENT [Concomitant]
  10. ALBUTEROL [Concomitant]
  11. CELLCEPT [Concomitant]
  12. WARFARIN SODIUM [Concomitant]
  13. MIACALCIN [Concomitant]
  14. CALCIUM SUPPLEMENTS [Concomitant]

REACTIONS (2)
  - ABDOMINAL PAIN [None]
  - BODY TEMPERATURE INCREASED [None]
